FAERS Safety Report 7323771-3 (Version None)
Quarter: 2011Q1

REPORT INFORMATION
  Report Type: 
  Country: None (occurrence: None)
  Receive Date: 20110301
  Receipt Date: 20110111
  Transmission Date: 20110831
  Serious: Yes (Hospitalization, Other)
  Sender: FDA-Public Use
  Company Number: US-JNJFOC-20110103642

PATIENT
  Sex: Female
  Weight: 75.8 kg

DRUGS (6)
  1. INFLIXIMAB, RECOMBINANT [Suspect]
     Indication: INFLAMMATORY BOWEL DISEASE
     Route: 042
  2. MESALAMINE [Concomitant]
  3. HUMALOG [Concomitant]
  4. POSTURE D CALCIUM [Concomitant]
  5. MIRALAX [Concomitant]
  6. FERROUS SULFATE TAB [Concomitant]

REACTIONS (2)
  - COLITIS [None]
  - HAEMORRHAGIC ANAEMIA [None]
